FAERS Safety Report 5528060-5 (Version None)
Quarter: 2007Q4

REPORT INFORMATION
  Report Type: 
  Country: None (occurrence: None)
  Receive Date: 20071121
  Receipt Date: 20071031
  Transmission Date: 20080405
  Serious: Yes (Other)
  Sender: FDA-Public Use
  Company Number: ENT 2006-0101

PATIENT
  Age: 65 Year
  Sex: Male

DRUGS (4)
  1. ENTACAPONE [Suspect]
     Indication: PARKINSON'S DISEASE
     Dosage: 800 MG (200 MG, 4 IN 1 D) ORAL
     Route: 048
     Dates: start: 20050101, end: 20051201
  2. SINEMET [Concomitant]
  3. SELEGILINE HCL [Concomitant]
  4. ROPINIROLE HCL [Concomitant]

REACTIONS (3)
  - DRY MOUTH [None]
  - PROSTATE CANCER [None]
  - TOOTH LOSS [None]
